FAERS Safety Report 4536894-9 (Version None)
Quarter: 2004Q4

REPORT INFORMATION
  Report Type: 
  Country: None (occurrence: None)
  Receive Date: 20041223
  Receipt Date: 20041210
  Transmission Date: 20050328
  Serious: Yes (Hospitalization)
  Sender: FDA-Public Use
  Company Number: NBX04004

PATIENT
  Age: 61 Year
  Sex: Female

DRUGS (7)
  1. NABUMETONE [Suspect]
     Indication: DRUG USE FOR UNKNOWN INDICATION
     Route: 048
     Dates: start: 20040719
  2. PLAVIX [Concomitant]
     Dosage: 75MG PER DAY
     Route: 065
  3. TAHOR [Concomitant]
     Dosage: 1TAB PER DAY
     Route: 065
  4. SOTALEX [Concomitant]
     Route: 065
  5. FLECAINE [Concomitant]
     Dosage: .5TAB TWICE PER DAY
     Route: 065
  6. KALEORID [Concomitant]
     Dosage: 1TAB PER DAY
     Route: 065
  7. FLAVONOIDES [Concomitant]
     Dosage: 2TAB PER DAY
     Route: 065

REACTIONS (2)
  - SYNCOPE VASOVAGAL [None]
  - TACHYARRHYTHMIA [None]
